FAERS Safety Report 5478818-6 (Version None)
Quarter: 2007Q4

REPORT INFORMATION
  Report Type: 
  Country: None (occurrence: None)
  Receive Date: 20071005
  Receipt Date: 20070926
  Transmission Date: 20080405
  Serious: Yes (Other)
  Sender: FDA-Public Use
  Company Number: US-PFIZER INC-2007071406

PATIENT
  Sex: Male
  Weight: 59 kg

DRUGS (4)
  1. SERTRALINE HCL [Suspect]
     Indication: OBSESSIVE-COMPULSIVE DISORDER
     Dates: start: 20070423, end: 20070428
  2. INSULIN [Concomitant]
     Indication: DIABETES MELLITUS
  3. LIPITOR [Concomitant]
     Indication: BLOOD CHOLESTEROL INCREASED
  4. SYNTHROID [Concomitant]
     Indication: THYROID DISORDER

REACTIONS (4)
  - HYPOAESTHESIA [None]
  - SENSATION OF HEAVINESS [None]
  - TREMOR [None]
  - VISUAL FIELD DEFECT [None]
